FAERS Safety Report 8388423-X (Version None)
Quarter: 2012Q2

REPORT INFORMATION
  Report Type: 
  Country: None (occurrence: None)
  Receive Date: 20120525
  Receipt Date: 20120521
  Transmission Date: 20120825
  Serious: Yes (Hospitalization)
  Sender: FDA-Public Use
  Company Number: US-TEVA-320843USA

PATIENT
  Sex: Male

DRUGS (11)
  1. RITUXAN [Suspect]
     Route: 042
     Dates: start: 20110913, end: 20111018
  2. RITUXAN [Suspect]
     Indication: CHRONIC LYMPHOCYTIC LEUKAEMIA
     Route: 042
     Dates: start: 20110816, end: 20110816
  3. ABT-263 [Suspect]
     Indication: CHRONIC LYMPHOCYTIC LEUKAEMIA
     Dosage: ONCE DAILY FOR 3 DAYS OUT OF EACH 28 DAYS
     Route: 048
     Dates: start: 20110817
  4. TOPIRAMATE [Concomitant]
     Indication: MIGRAINE
     Dosage: 50 MILLIGRAM;
     Dates: start: 20110101
  5. ALLOPURINOL [Concomitant]
     Indication: TUMOUR LYSIS SYNDROME
     Dosage: 300 MILLIGRAM;
     Dates: start: 20110815
  6. OLMESARTAN MEDOXOMIL [Concomitant]
     Indication: HYPERTENSION
     Dosage: 12.5 MILLIGRAM;
     Route: 048
     Dates: start: 20110101
  7. TREANDA [Suspect]
     Indication: CHRONIC LYMPHOCYTIC LEUKAEMIA
     Route: 042
     Dates: start: 20110817, end: 20111019
  8. ACETAMINOPHEN [Concomitant]
     Indication: PROPHYLAXIS
     Dosage: PRE-INFUSION
     Dates: start: 20110816
  9. SUXATRIPTAN [Concomitant]
     Indication: MIGRAINE
     Dosage: AS REQUIRED
     Route: 048
     Dates: start: 20110331
  10. DIPHENHYDRAMINE HCL [Concomitant]
     Indication: PROPHYLAXIS
     Dosage: PRE-INFUSION
     Dates: start: 20110816
  11. SIMVASTATIN [Concomitant]
     Indication: HYPERLIPIDAEMIA
     Dosage: 40 MILLIGRAM;
     Route: 048
     Dates: start: 20110331

REACTIONS (1)
  - INTERSTITIAL LUNG DISEASE [None]
